FAERS Safety Report 4882069-3 (Version None)
Quarter: 2006Q1

REPORT INFORMATION
  Report Type: 
  Country: None (occurrence: None)
  Receive Date: 20060113
  Receipt Date: 20060113
  Transmission Date: 20060701
  Serious: Yes (Other)
  Sender: FDA-Public Use
  Company Number: None

PATIENT
  Age: 64 Year
  Sex: Female
  Weight: 46.2669 kg

DRUGS (4)
  1. SULFASALAZINE [Suspect]
     Indication: CROHN'S DISEASE
     Dosage: 7.5 TABLETS DAILY BY MOUTH
     Dates: start: 20051123
  2. LOMOTIL [Concomitant]
  3. TPN [Concomitant]
  4. BENADRYL [Concomitant]

REACTIONS (5)
  - DISCOMFORT [None]
  - FREQUENT BOWEL MOVEMENTS [None]
  - PAIN [None]
  - PHARMACEUTICAL PRODUCT COMPLAINT [None]
  - STEATORRHOEA [None]
